FAERS Safety Report 4893162-3 (Version None)
Quarter: 2005Q4

REPORT INFORMATION
  Report Type: 
  Country: None (occurrence: None)
  Receive Date: 20051223
  Receipt Date: 20050814
  Transmission Date: 20060501
  Serious: Yes (Other)
  Sender: FDA-Public Use
  Company Number: PHEH2005US09140

PATIENT
  Sex: Male

DRUGS (5)
  1. CLOZARIL [Suspect]
     Indication: SCHIZOPHRENIA
     Dosage: 300 OR 400 MG, QD, ORAL
     Route: 048
     Dates: end: 20050814
  2. CLOMIPRAMINE HCL [Concomitant]
  3. LOXAPINE [Concomitant]
  4. LAMICTAL [Concomitant]
  5. ATIVAN [Concomitant]

REACTIONS (2)
  - AGRANULOCYTOSIS [None]
  - LEUKOPENIA [None]
